FAERS Safety Report 12290255 (Version 2)
Quarter: 2016Q2

REPORT INFORMATION
  Report Type: Report from Study
  Country: JP (occurrence: JP)
  Receive Date: 20160421
  Receipt Date: 20160523
  Transmission Date: 20160815
  Serious: Yes (Hospitalization)
  Sender: FDA-Public Use
  Company Number: JP-ACTELION-A-CH2016-133272

PATIENT
  Age: 41 Year
  Sex: Female

DRUGS (20)
  1. MACITENTAN [Suspect]
     Active Substance: MACITENTAN
     Indication: SCLERODERMA ASSOCIATED DIGITAL ULCER
     Dosage: 10 MG, QD
     Route: 048
     Dates: start: 20160208, end: 20160219
  2. URSODEOXYCHOLIC ACID [Concomitant]
     Active Substance: URSODIOL
  3. MOSAPRIDE CITRATE [Concomitant]
     Active Substance: MOSAPRIDE CITRATE
  4. PREDNISOLONE. [Concomitant]
     Active Substance: PREDNISOLONE
  5. MIRTAZAPINE. [Concomitant]
     Active Substance: MIRTAZAPINE
  6. ESZOPICLONE. [Concomitant]
     Active Substance: ESZOPICLONE
  7. SULFAMETHOXAZOLE AND TRIMETHOPRIM [Concomitant]
     Active Substance: SULFAMETHOXAZOLE\TRIMETHOPRIM
  8. DAIKENTYUTO [Concomitant]
     Active Substance: HERBALS
  9. RABEPRAZOLE [Concomitant]
     Active Substance: RABEPRAZOLE
  10. SENNA LEAF [Concomitant]
     Active Substance: SENNA LEAF
  11. CICLOSPORIN [Concomitant]
     Active Substance: CYCLOSPORINE
  12. BERAPROST SODIUM [Concomitant]
     Active Substance: BERAPROST SODIUM
  13. CLONAZEPAM. [Concomitant]
     Active Substance: CLONAZEPAM
  14. LACTULOSE. [Concomitant]
     Active Substance: LACTULOSE
  15. CLOSTRIDIUM BUTYRICUM [Concomitant]
     Active Substance: CLOSTRIDIUM BUTYRICUM SPORES STRAIN M-55
  16. PLAQUENIL [Suspect]
     Active Substance: HYDROXYCHLOROQUINE SULFATE
     Dosage: 200 MG, QOD
     Route: 048
     Dates: start: 20160130, end: 20160302
  17. PLAQUENIL [Suspect]
     Active Substance: HYDROXYCHLOROQUINE SULFATE
     Indication: SYSTEMIC LUPUS ERYTHEMATOSUS
     Dosage: 400 MG, QOD
     Route: 048
     Dates: start: 20160129, end: 20160303
  18. LOSARTAN POTASSIUM. [Concomitant]
     Active Substance: LOSARTAN POTASSIUM
  19. DIAZEPAM. [Concomitant]
     Active Substance: DIAZEPAM
  20. MAGNESIUM OXIDE. [Concomitant]
     Active Substance: MAGNESIUM OXIDE

REACTIONS (4)
  - Haemoglobin decreased [Recovered/Resolved]
  - White blood cell count decreased [Recovered/Resolved]
  - Platelet count decreased [Recovered/Resolved]
  - Anaemia [Recovered/Resolved]

NARRATIVE: CASE EVENT DATE: 20160216
